FAERS Safety Report 21770812 (Version 1)
Quarter: 2022Q4

REPORT INFORMATION
  Report Type: Other
  Country: None (occurrence: US)
  Receive Date: 20221223
  Receipt Date: 20221223
  Transmission Date: 20230113
  Serious: Yes (Hospitalization, Other)
  Sender: FDA-Public Use
  Company Number: US-Eywa Pharma Inc.-2136124

PATIENT
  Age: 50 Year
  Sex: Male

DRUGS (1)
  1. VALPROIC ACID [Suspect]
     Active Substance: VALPROIC ACID
     Indication: Seizure
     Route: 065

REACTIONS (5)
  - Mental status changes [Recovering/Resolving]
  - Tremor [Unknown]
  - Asterixis [Unknown]
  - Neurotoxicity [Unknown]
  - Toxicity to various agents [Unknown]
